FAERS Safety Report 16470471 (Version 1)
Quarter: 2019Q2

REPORT INFORMATION
  Report Type: Spontaneous
  Country: US (occurrence: US)
  Receive Date: 20190624
  Receipt Date: 20190624
  Transmission Date: 20190711
  Serious: Yes (Death, Hospitalization, Other)
  Sender: FDA-Public Use
  Company Number: US-MYLANLABS-2019M1057677

PATIENT
  Age: 34 Year
  Sex: Female

DRUGS (1)
  1. DIPHENHYDRAMINE. [Suspect]
     Active Substance: DIPHENHYDRAMINE
     Indication: PRODUCT USED FOR UNKNOWN INDICATION
     Dosage: SHE OVERDOSED WITH TWO BOTTLES OF DIPHENHYDRAMINE
     Route: 065

REACTIONS (7)
  - Acute respiratory distress syndrome [Fatal]
  - Overdose [Fatal]
  - Cardiac arrest [Fatal]
  - Vasoplegia syndrome [Fatal]
  - Brain death [Fatal]
  - Seizure [Fatal]
  - Electrocardiogram abnormal [Recovered/Resolved]
